FAERS Safety Report 11181564 (Version 5)
Quarter: 2015Q4

REPORT INFORMATION
  Report Type: Spontaneous
  Country: US (occurrence: US)
  Receive Date: 20150611
  Receipt Date: 20151229
  Transmission Date: 20160304
  Serious: Yes (Other)
  Sender: FDA-Public Use
  Company Number: US-ASTELLAS-2015US013558

PATIENT
  Age: 72 Year
  Sex: Male

DRUGS (2)
  1. XTANDI [Suspect]
     Active Substance: ENZALUTAMIDE
     Indication: PROSTATE CANCER
     Route: 048
     Dates: start: 20150120, end: 20150730
  2. XTANDI [Suspect]
     Active Substance: ENZALUTAMIDE
     Indication: METASTASES TO BONE

REACTIONS (17)
  - Neoplasm [Unknown]
  - Paralysis [Unknown]
  - Dizziness [Unknown]
  - Hypoaesthesia oral [Unknown]
  - Headache [Unknown]
  - Toothache [Unknown]
  - Drug ineffective [Unknown]
  - Thrombosis [Unknown]
  - Constipation [Unknown]
  - Incontinence [Unknown]
  - Prostatic specific antigen increased [Unknown]
  - Drug effect incomplete [Unknown]
  - VIIth nerve paralysis [Unknown]
  - Nausea [Unknown]
  - Dehydration [Unknown]
  - Functional gastrointestinal disorder [Unknown]
  - Hypoaesthesia [Unknown]

NARRATIVE: CASE EVENT DATE: 20150501
